FAERS Safety Report 7939917-X (Version None)
Quarter: 2011Q4

REPORT INFORMATION
  Report Type: 
  Country: None (occurrence: None)
  Receive Date: 20111125
  Receipt Date: 20111121
  Transmission Date: 20120403
  Serious: Yes (Other)
  Sender: FDA-Public Use
  Company Number: CA-PFIZER INC-2011276778

PATIENT
  Age: 59 Year
  Sex: Female
  Weight: 55.8 kg

DRUGS (5)
  1. PROVERA [Suspect]
     Dosage: 5 MG, 1X/DAY
     Route: 048
     Dates: start: 20110526, end: 20110608
  2. PREMARIN [Concomitant]
     Indication: HORMONE REPLACEMENT THERAPY
     Dosage: 0.625 UNK, 1X/DAY
     Dates: start: 20080401
  3. ACTONEL [Concomitant]
     Indication: OSTEOPOROSIS
     Dosage: UNK WEEKLY
     Dates: start: 20080401
  4. PROVERA [Suspect]
     Indication: HORMONE REPLACEMENT THERAPY
     Dosage: 5 MG, 1X/DAY
     Route: 048
     Dates: start: 20080401
  5. PROVERA [Suspect]
     Dosage: UNK
     Dates: start: 20110721

REACTIONS (2)
  - UTERINE POLYP [None]
  - UTERINE HAEMORRHAGE [None]
